FAERS Safety Report 15162444 (Version 1)
Quarter: 2018Q3

REPORT INFORMATION
  Report Type: Report from Study
  Country: US (occurrence: US)
  Receive Date: 20180718
  Receipt Date: 20180718
  Transmission Date: 20181010
  Serious: No
  Sender: FDA-Public Use
  Company Number: US-AMGEN-USASP2014017314

PATIENT
  Age: 49 Year
  Sex: Male

DRUGS (1)
  1. ENBREL [Suspect]
     Active Substance: ETANERCEPT
     Indication: PSORIATIC ARTHROPATHY
     Dosage: QWK
     Route: 065
     Dates: start: 20100601

REACTIONS (3)
  - Joint effusion [Recovered/Resolved]
  - Joint swelling [Recovered/Resolved]
  - Meniscus injury [Recovered/Resolved]

NARRATIVE: CASE EVENT DATE: 2013
